FAERS Safety Report 23281040 (Version 1)
Quarter: 2023Q4

REPORT INFORMATION
  Report Type: Spontaneous
  Country: US (occurrence: US)
  Receive Date: 20231211
  Receipt Date: 20231211
  Transmission Date: 20240109
  Serious: No
  Sender: FDA-Public Use
  Company Number: US-NOVEN PHARMACEUTICALS, INC.-2023-NOV-US001195

PATIENT
  Sex: Female

DRUGS (2)
  1. ESTRADIOL [Suspect]
     Active Substance: ESTRADIOL
     Indication: Postmenopause
     Dosage: 0.025 MG, UNK
     Route: 062
     Dates: start: 202304, end: 20230506
  2. ESTRADIOL [Suspect]
     Active Substance: ESTRADIOL
     Dosage: 0.025 MG, UNK
     Route: 062
     Dates: start: 20230315, end: 202304

REACTIONS (2)
  - Endometrial thickening [Recovered/Resolved]
  - Postmenopausal haemorrhage [Recovered/Resolved]
